FAERS Safety Report 4460591-1 (Version None)
Quarter: 2004Q3

REPORT INFORMATION
  Report Type: 
  Country: None (occurrence: None)
  Receive Date: 20040928
  Receipt Date: 20040824
  Transmission Date: 20050211
  Serious: No
  Sender: FDA-Public Use
  Company Number: US-GLAXOSMITHKLINE-A0523321A

PATIENT
  Sex: Male

DRUGS (7)
  1. ADVAIR DISKUS 100/50 [Suspect]
     Indication: ILL-DEFINED DISORDER
     Route: 055
  2. LIPITOR [Concomitant]
  3. CELEBREX [Concomitant]
  4. COUMADIN [Concomitant]
  5. FUROSAMIDE [Concomitant]
  6. POTASSIUM [Concomitant]
  7. ATENOLOL [Concomitant]

REACTIONS (1)
  - DYSPNOEA [None]
